FAERS Safety Report 4634728-5 (Version None)
Quarter: 2005Q2

REPORT INFORMATION
  Report Type: 
  Country: None (occurrence: None)
  Receive Date: 20050412
  Receipt Date: 20050330
  Transmission Date: 20051028
  Serious: Yes (Disabling)
  Sender: FDA-Public Use
  Company Number: 200502594

PATIENT
  Age: 55 Year
  Sex: Female

DRUGS (6)
  1. BOTOX [Suspect]
     Indication: TREMOR
     Dosage: 190 UNITS PRN IM
     Route: 030
     Dates: start: 20030401, end: 20041001
  2. METOPROLOL TARTRATE [Concomitant]
  3. FLUOXETINE [Concomitant]
  4. HYDROCHLOROTHIAZIDE [Concomitant]
  5. POTASSIUM CHLORIDE [Concomitant]
  6. METRONIDAZOLE [Concomitant]

REACTIONS (1)
  - HYPOACUSIS [None]
